FAERS Safety Report 7357747-7 (Version None)
Quarter: 2011Q1

REPORT INFORMATION
  Report Type: 
  Country: None (occurrence: None)
  Receive Date: 20110317
  Receipt Date: 20110314
  Transmission Date: 20110831
  Serious: Yes (Hospitalization)
  Sender: FDA-Public Use
  Company Number: DE-PFIZER INC-2010177356

PATIENT
  Age: 79 Year
  Sex: Female

DRUGS (1)
  1. LYRICA [Suspect]
     Indication: NEURALGIA
     Dosage: 75 MG, 1X/DAY
     Route: 048
     Dates: start: 20100101, end: 20100301

REACTIONS (4)
  - TACHYARRHYTHMIA [None]
  - ARRHYTHMIA [None]
  - ATRIAL FIBRILLATION [None]
  - EXTRASYSTOLES [None]
